FAERS Safety Report 21268462 (Version 2)
Quarter: 2022Q4

REPORT INFORMATION
  Report Type: Spontaneous
  Country: US (occurrence: None)
  Receive Date: 20220830
  Receipt Date: 20221013
  Transmission Date: 20230113
  Serious: Yes (Other)
  Sender: FDA-Public Use
  Company Number: US-ROCHE-3167095

PATIENT
  Sex: Female
  Weight: 63.560 kg

DRUGS (15)
  1. ACTEMRA [Suspect]
     Active Substance: TOCILIZUMAB
     Indication: Giant cell arteritis
     Dosage: STRENGTH: 162 MG/0.9 ML
     Route: 058
     Dates: start: 2014
  2. ACTEMRA [Suspect]
     Active Substance: TOCILIZUMAB
  3. ALENDRONATE [Concomitant]
     Active Substance: ALENDRONATE SODIUM
     Indication: Osteopenia
     Dosage: STARTED ABOUT 2-3 YEARS AGO ;ONGOING: YES
     Route: 048
  4. ASPIRIN [Concomitant]
     Active Substance: ASPIRIN
     Indication: Anticoagulant therapy
     Dosage: STARTED BEFORE ACTEMRA ; ONGOING: YES
     Route: 048
     Dates: start: 2013
  5. ATORVASTATIN [Concomitant]
     Active Substance: ATORVASTATIN
     Indication: Blood cholesterol increased
     Dosage: STARTED BEFORE ACTEMRA; ONGOING: YES
     Route: 048
  6. SERTRALINE [Concomitant]
     Active Substance: SERTRALINE HYDROCHLORIDE
     Indication: Depression
     Dosage: STARTED BEFORE ACTEMRA ; ONGOING: YES
     Route: 048
  7. ISOSORBIDE [Concomitant]
     Active Substance: ISOSORBIDE
     Indication: Chest pain
     Dosage: STARTED BEFORE ACTEMRA ;ONGOING: YES
     Route: 048
  8. BRILINTA [Concomitant]
     Active Substance: TICAGRELOR
     Dosage: STARTED BEFORE ACTEMRA ; ONGOING: YES
     Route: 048
  9. OXCARBAZEPINE [Concomitant]
     Active Substance: OXCARBAZEPINE
     Indication: Trigeminal neuropathy
     Dosage: STARTED 3-4 YEARS AGO ;ONGOING: YES
     Route: 048
  10. FOLIC ACID [Concomitant]
     Active Substance: FOLIC ACID
     Route: 048
     Dates: start: 2019
  11. FOLIC ACID [Concomitant]
     Active Substance: FOLIC ACID
     Dosage: (5) 1 MG TABLETS; TAKES THE DAY AFTER SHE SHE TAKES METHOTREXATE ;ONGOING: YES
     Route: 048
     Dates: start: 2019
  12. PANTOPRAZOLE [Concomitant]
     Active Substance: PANTOPRAZOLE
     Indication: Gastritis
     Route: 048
     Dates: start: 2020
  13. DILTIAZEM [Concomitant]
     Active Substance: DILTIAZEM
     Indication: Ventricular extrasystoles
     Dosage: (0.5) 30 MG TABLET ;ONGOING: YES
     Route: 048
     Dates: start: 2020
  14. CALCIUM\VITAMIN D [Concomitant]
     Active Substance: CALCIUM\VITAMIN D
     Indication: Osteopenia
     Dosage: 600 MG CALCIUM/400 MG VITAMIN D; STARTED BEFORE ACTEMRA ;ONGOING: YES
     Route: 048
  15. VITAMIN D3 [Concomitant]
     Active Substance: CHOLECALCIFEROL
     Indication: Osteopenia
     Dosage: STARTED BEFORE ACTEMRA ;ONGOING: YES
     Route: 048

REACTIONS (9)
  - Underdose [Unknown]
  - Osteopenia [Not Recovered/Not Resolved]
  - Polymyalgia rheumatica [Not Recovered/Not Resolved]
  - Trigeminal neuropathy [Not Recovered/Not Resolved]
  - Gastritis [Recovered/Resolved]
  - Ventricular extrasystoles [Not Recovered/Not Resolved]
  - Fractured sacrum [Unknown]
  - Humerus fracture [Unknown]
  - Product complaint [Unknown]

NARRATIVE: CASE EVENT DATE: 20190101
